FAERS Safety Report 11479944 (Version 1)
Quarter: 2015Q3

REPORT INFORMATION
  Report Type: Report from Study
  Country: FR (occurrence: FR)
  Receive Date: 20150909
  Receipt Date: 20150909
  Transmission Date: 20151125
  Serious: No
  Sender: FDA-Public Use
  Company Number: FR-JAZZ-2015-FR-010873

PATIENT
  Age: 9 Year
  Sex: Male

DRUGS (3)
  1. MODIODAL [Concomitant]
     Active Substance: MODAFINIL
     Indication: PRODUCT USED FOR UNKNOWN INDICATION
     Dosage: 3 DF, TWICE DAILY
  2. XYREM [Suspect]
     Active Substance: SODIUM OXYBATE
     Indication: NARCOLEPSY
     Dosage: 1.5 G, BID
     Route: 048
     Dates: start: 20150717, end: 20150731
  3. XYREM [Suspect]
     Active Substance: SODIUM OXYBATE
     Indication: CATAPLEXY
     Dosage: 2 G, BID
     Route: 048
     Dates: start: 20150801

REACTIONS (3)
  - Dizziness [Recovered/Resolved]
  - Incorrect dose administered [Unknown]
  - Vertigo [Unknown]

NARRATIVE: CASE EVENT DATE: 20150716
